FAERS Safety Report 5987193-X (Version None)
Quarter: 2008Q4

REPORT INFORMATION
  Report Type: 
  Country: None (occurrence: None)
  Receive Date: 20081209
  Receipt Date: 20081201
  Transmission Date: 20090506
  Serious: Yes (Disabling, Other)
  Sender: FDA-Public Use
  Company Number: ES-ELI_LILLY_AND_COMPANY-ES200810005491

PATIENT
  Age: 14 Year
  Sex: Male

DRUGS (2)
  1. HUMATROPE [Suspect]
     Indication: GROWTH HORMONE DEFICIENCY
     Dosage: 1.8 MG, DAILY (1/D)
     Route: 058
     Dates: start: 20061001
  2. HUMATROPE [Suspect]
     Dosage: 1.4 MG, DAILY (1/D)
     Route: 058
     Dates: start: 20080501, end: 20080601

REACTIONS (3)
  - BLINDNESS [None]
  - RETINOPATHY PROLIFERATIVE [None]
  - VITREOUS HAEMORRHAGE [None]
